FAERS Safety Report 18925227 (Version 1)
Quarter: 2021Q1

REPORT INFORMATION
  Report Type: Spontaneous
  Country: US (occurrence: US)
  Receive Date: 20210223
  Receipt Date: 20210223
  Transmission Date: 20210420
  Serious: No
  Sender: FDA-Public Use
  Company Number: US-ACADIA PHARMACEUTICALS INC.-ACA-2021-PIM-000441

PATIENT
  Age: 74 Year
  Sex: Female

DRUGS (5)
  1. NUPLAZID [Suspect]
     Active Substance: PIMAVANSERIN TARTRATE
     Indication: PARKINSON^S DISEASE PSYCHOSIS
     Dosage: 34 MILLIGRAM, QD
     Route: 065
  2. LEVODOPA [Concomitant]
     Active Substance: LEVODOPA
  3. QUETIAPINE. [Concomitant]
     Active Substance: QUETIAPINE
     Dosage: 100 MG AT DISCHARGE
  4. QUETIAPINE. [Concomitant]
     Active Substance: QUETIAPINE
     Dosage: 75 MILLIGRAM, QD
  5. QUETIAPINE. [Concomitant]
     Active Substance: QUETIAPINE
     Dosage: 50 MILLIGRAM, QD

REACTIONS (3)
  - Sleep disorder [Unknown]
  - Therapeutic response unexpected [Unknown]
  - Anxiety [Unknown]
